FAERS Safety Report 9729990 (Version 1)
Quarter: 2013Q4

REPORT INFORMATION
  Report Type: Spontaneous
  Country: US (occurrence: US)
  Receive Date: 20131204
  Receipt Date: 20131204
  Transmission Date: 20140711
  Serious: No
  Sender: FDA-Public Use
  Company Number: US-TEVA-445640USA

PATIENT
  Age: 35 Year
  Sex: Female
  Weight: 61.74 kg

DRUGS (2)
  1. PARAGARD 380A [Suspect]
     Indication: CONTRACEPTION
     Dates: start: 20130930
  2. PRENATAL VITAMINS [Concomitant]
     Indication: BREAST FEEDING

REACTIONS (1)
  - Device expulsion [Not Recovered/Not Resolved]
